FAERS Safety Report 10182560 (Version 2)
Quarter: 2014Q2

REPORT INFORMATION
  Report Type: Spontaneous
  Country: US (occurrence: None)
  Receive Date: 20140516
  Receipt Date: 20140618
  Transmission Date: 20141212
  Serious: Yes (Other)
  Sender: FDA-Public Use
  Company Number: ADR-2014-00819

PATIENT
  Age: 55 Year
  Sex: Female

DRUGS (1)
  1. LIORESAL [Suspect]
     Indication: MUSCLE SPASTICITY

REACTIONS (10)
  - Nausea [None]
  - Hyperhidrosis [None]
  - Hypertonia [None]
  - Feeling abnormal [None]
  - Influenza like illness [None]
  - Swelling [None]
  - Drug withdrawal syndrome [None]
  - Muscle spasticity [None]
  - Medical device complication [None]
  - Scar [None]
